FAERS Safety Report 10563125 (Version 2)
Quarter: 2014Q4

REPORT INFORMATION
  Report Type: Spontaneous
  Country: US (occurrence: US)
  Receive Date: 20141104
  Receipt Date: 20141201
  Transmission Date: 20150529
  Serious: Yes (Other)
  Sender: FDA-Public Use
  Company Number: US-PFIZER INC-2014300325

PATIENT
  Age: 59 Year
  Sex: Female
  Weight: 64.85 kg

DRUGS (1)
  1. SOLU-MEDROL [Suspect]
     Active Substance: METHYLPREDNISOLONE SODIUM SUCCINATE
     Indication: DYSPNOEA
     Dosage: SINGLE
     Dates: start: 20141022, end: 20141022

REACTIONS (10)
  - Bronchial hyperreactivity [Recovering/Resolving]
  - Pruritus [Recovering/Resolving]
  - Lymphadenopathy [Recovering/Resolving]
  - Lung disorder [Unknown]
  - Disease progression [Unknown]
  - Hypersensitivity [Recovering/Resolving]
  - Urticaria [Recovering/Resolving]
  - Rash [Recovering/Resolving]
  - Injection site pruritus [Unknown]
  - Palmar erythema [Recovering/Resolving]

NARRATIVE: CASE EVENT DATE: 2014
